FAERS Safety Report 9006231 (Version 2)
Quarter: 2013Q1

REPORT INFORMATION
  Report Type: Spontaneous
  Country: US (occurrence: US)
  Receive Date: 20130110
  Receipt Date: 20130128
  Transmission Date: 20140127
  Serious: No
  Sender: FDA-Public Use
  Company Number: US-009507513-1301USA003309

PATIENT
  Sex: Female

DRUGS (1)
  1. LISINOPRIL [Suspect]
     Dosage: UNK UNK, QD
     Route: 048

REACTIONS (2)
  - Drug hypersensitivity [Unknown]
  - Urticaria [Unknown]
